FAERS Safety Report 18315513 (Version 3)
Quarter: 2020Q4

REPORT INFORMATION
  Report Type: Spontaneous
  Country: US (occurrence: US)
  Receive Date: 20200926
  Receipt Date: 20201112
  Transmission Date: 20210113
  Serious: Yes (Other)
  Sender: FDA-Public Use
  Company Number: US-SERVIER-S20009412

PATIENT

DRUGS (4)
  1. ONCASPAR [Suspect]
     Active Substance: PEGASPARGASE
     Indication: ACUTE LYMPHOCYTIC LEUKAEMIA
     Dosage: UNK
     Route: 065
     Dates: start: 20200702, end: 20200702
  2. TN UNSPECIEFIED [Concomitant]
     Indication: ACUTE LYMPHOCYTIC LEUKAEMIA
     Dosage: 15 MG, ONE DOSE
     Route: 037
     Dates: start: 20200902, end: 20200902
  3. ONCASPAR [Suspect]
     Active Substance: PEGASPARGASE
     Dosage: 4325 IU
     Route: 042
     Dates: start: 20200902, end: 20200902
  4. ONCASPAR [Suspect]
     Active Substance: PEGASPARGASE
     Dosage: 4350 IU
     Route: 042
     Dates: start: 20200914, end: 20200914

REACTIONS (1)
  - Drug hypersensitivity [Recovered/Resolved]

NARRATIVE: CASE EVENT DATE: 20200902
